FAERS Safety Report 8935786 (Version 1)
Quarter: 2012Q4

REPORT INFORMATION
  Report Type: 
  Country: US (occurrence: US)
  Receive Date: 20121130
  Receipt Date: 20121130
  Transmission Date: 20130627
  Serious: Yes (Hospitalization)
  Sender: FDA-Public Use
  Company Number: US-JNJFOC-20121111423

PATIENT
  Age: 54 Year
  Sex: Female

DRUGS (15)
  1. TYLENOL [Suspect]
     Route: 065
  2. TYLENOL [Suspect]
     Indication: PAIN
     Dosage: 2 tablets of unknown strength
     Route: 065
     Dates: start: 20080707, end: 20080707
  3. PERCOCET [OXYCODONE HYDROCHLORIDE,PARACETAMOL] [Suspect]
     Indication: PAIN
     Dosage: 3 tablets daily
     Route: 048
     Dates: end: 20080707
  4. RENAGEL [Concomitant]
     Indication: RENAL FAILURE
     Dosage: 2 tablets with snacks
     Route: 048
     Dates: end: 20080707
  5. RENAGEL [Concomitant]
     Indication: RENAL FAILURE
     Dosage: 3 tablets with meals
     Route: 048
     Dates: end: 20080707
  6. CRESTOR [Concomitant]
     Indication: HYPERLIPIDAEMIA
     Route: 065
     Dates: end: 20080707
  7. PAXIL [Concomitant]
     Indication: DEPRESSION
     Route: 048
     Dates: end: 20080707
  8. REGLAN [Concomitant]
     Indication: DIABETIC GASTROPARESIS
     Route: 048
     Dates: end: 20080707
  9. RETIN A [Concomitant]
     Indication: SKIN DISORDER
     Route: 065
     Dates: end: 20080707
  10. NEURONTIN [Concomitant]
     Indication: NEUROPATHY PERIPHERAL
     Route: 048
     Dates: end: 20080707
  11. METOPROLOL [Concomitant]
     Indication: CORONARY ARTERY DISEASE
     Route: 048
     Dates: end: 20080707
  12. LANTUS INSULIN [Concomitant]
     Indication: DIABETES MELLITUS
     Route: 058
     Dates: end: 20080707
  13. ZEMPLAR [Concomitant]
     Indication: PRODUCT USED FOR UNKNOWN INDICATION
     Route: 065
  14. EPOGEN [Concomitant]
     Indication: ANAEMIA
     Route: 065
     Dates: end: 20080707
  15. NEXIUM [Concomitant]
     Indication: GASTROOESOPHAGEAL REFLUX DISEASE
     Route: 048
     Dates: end: 20080707

REACTIONS (5)
  - Overdose [Unknown]
  - Aspartate aminotransferase increased [Unknown]
  - Alanine aminotransferase increased [Unknown]
  - Blood bilirubin increased [Unknown]
  - Bilirubin conjugated increased [Unknown]
